FAERS Safety Report 13400814 (Version 1)
Quarter: 2017Q2

REPORT INFORMATION
  Report Type: Spontaneous
  Country: US (occurrence: US)
  Receive Date: 20170404
  Receipt Date: 20170404
  Transmission Date: 20170830
  Serious: Yes (Hospitalization)
  Sender: FDA-Public Use
  Company Number: US-B.I. PHARMACEUTICALS,INC./RIDGEFIELD-2017-BI-017936

PATIENT
  Age: 72 Year
  Sex: Male

DRUGS (3)
  1. LISINOPRIL. [Concomitant]
     Active Substance: LISINOPRIL
     Indication: HYPERTENSION
     Dosage: QD;  FORM STRENGTH: 5MG; FORMULATION: TABLET
     Route: 048
     Dates: start: 2013
  2. PREDNISONE. [Concomitant]
     Active Substance: PREDNISONE
     Indication: IDIOPATHIC PULMONARY FIBROSIS
     Dosage: UNKNOWN;  FORM STRENGTH: 10MG; FORMULATION: TABLET
     Route: 048
     Dates: start: 201703
  3. OFEV [Suspect]
     Active Substance: NINTEDANIB
     Indication: IDIOPATHIC PULMONARY FIBROSIS
     Dosage: BID;  FORM STRENGTH: 150 MG; FORMULATION: CAPSULE? ADMINISTRATION CORRECT? YES ?ACTION(S) TAKEN WITH
     Route: 048
     Dates: start: 201510

REACTIONS (3)
  - Pneumonia [Unknown]
  - Idiopathic pulmonary fibrosis [Unknown]
  - Asthenia [Unknown]

NARRATIVE: CASE EVENT DATE: 201703
